FAERS Safety Report 6552668-1 (Version None)
Quarter: 2010Q1

REPORT INFORMATION
  Report Type: 
  Country: None (occurrence: None)
  Receive Date: 20100126
  Receipt Date: 20100115
  Transmission Date: 20100710
  Serious: Yes (Other)
  Sender: FDA-Public Use
  Company Number: B0610923A

PATIENT
  Sex: Male

DRUGS (4)
  1. COMBIVIR [Suspect]
     Indication: HIV INFECTION
     Route: 048
     Dates: start: 20010930
  2. KALETRA [Suspect]
     Indication: HIV INFECTION
     Route: 048
     Dates: start: 20010930
  3. GANCICLOVIR [Concomitant]
  4. FOSCAVIR [Concomitant]

REACTIONS (2)
  - CYTOMEGALOVIRUS CHORIORETINITIS [None]
  - IMMUNE RECONSTITUTION SYNDROME [None]
